FAERS Safety Report 8323145-2 (Version None)
Quarter: 2012Q2

REPORT INFORMATION
  Report Type: 
  Country: None (occurrence: None)
  Receive Date: 20120430
  Receipt Date: 20120425
  Transmission Date: 20120825
  Serious: Yes (Hospitalization)
  Sender: FDA-Public Use
  Company Number: US-B.I. PHARMACEUTICALS,INC./RIDGEFIELD-2012-BP-04533BP

PATIENT
  Sex: Female
  Weight: 77.11 kg

DRUGS (15)
  1. FLEXERIL [Concomitant]
  2. DILTIAZIN [Concomitant]
     Indication: HYPERTENSION
     Route: 048
     Dates: start: 20120301
  3. EFFIENT [Concomitant]
     Dosage: 10 MG
     Route: 048
  4. SPIRIVA [Suspect]
     Indication: CHRONIC OBSTRUCTIVE PULMONARY DISEASE
  5. SEROQUEL [Concomitant]
     Route: 048
     Dates: start: 20060101
  6. ASPIRIN [Concomitant]
     Dosage: 325 MG
     Route: 048
  7. ALBUTEROL [Concomitant]
     Indication: DYSPNOEA
     Route: 055
  8. CYCLOBENZAPRINE HCL [Concomitant]
     Dosage: 10 MG
     Route: 048
  9. FUROSEMIDE [Concomitant]
     Dosage: 20 MG
     Route: 048
  10. SPIRIVA [Suspect]
     Indication: ASTHMA
     Dosage: 18 MCG
     Route: 055
     Dates: start: 20120104, end: 20120304
  11. NAPROXAM SODIUM [Concomitant]
     Dates: start: 20080101
  12. SPIRIVA [Suspect]
     Indication: TOBACCO USER
  13. GABAPENTIN [Concomitant]
     Dosage: 900 MG
     Route: 048
     Dates: start: 20080101
  14. PRAVASTATIN [Concomitant]
     Indication: BLOOD CHOLESTEROL INCREASED
     Dosage: 40 MG
     Route: 048
     Dates: start: 20120301
  15. NITROGLYCERIN [Concomitant]
     Indication: CHEST PAIN

REACTIONS (4)
  - BACK PAIN [None]
  - MYOCARDIAL INFARCTION [None]
  - BLOOD CHOLESTEROL INCREASED [None]
  - HYPERTENSION [None]
